FAERS Safety Report 8623491-9 (Version None)
Quarter: 2012Q3

REPORT INFORMATION
  Report Type: 
  Country: None (occurrence: None)
  Receive Date: 20120824
  Receipt Date: 20120824
  Transmission Date: 20120928
  Serious: No
  Sender: FDA-Public Use
  Company Number: None

PATIENT
  Sex: Male
  Weight: 72.5755 kg

DRUGS (1)
  1. CILOSTAZOL [Suspect]
     Dosage: 1 TAB BY MOUTH TWICE A DAY
     Route: 048
     Dates: start: 20120301, end: 20120320

REACTIONS (2)
  - PRODUCT QUALITY ISSUE [None]
  - STOMATITIS [None]
